FAERS Safety Report 11940108 (Version 1)
Quarter: 2016Q1

REPORT INFORMATION
  Report Type: Report from Study
  Country: BR (occurrence: BR)
  Receive Date: 20160122
  Receipt Date: 20160122
  Transmission Date: 20160526
  Serious: Yes (Death, Hospitalization, Other)
  Sender: FDA-Public Use
  Company Number: BR-ABBVIE-16K-020-1543257-00

PATIENT
  Age: 60 Year
  Sex: Female
  Weight: 60 kg

DRUGS (1)
  1. HUMIRA [Suspect]
     Active Substance: ADALIMUMAB
     Indication: RHEUMATOID ARTHRITIS
     Route: 058
     Dates: start: 20080106, end: 201509

REACTIONS (8)
  - Pneumonitis [Fatal]
  - Tonsillar hypertrophy [Unknown]
  - Blood pressure inadequately controlled [Unknown]
  - Tonsillar inflammation [Unknown]
  - Pharyngeal disorder [Unknown]
  - Respiratory failure [Unknown]
  - Dysphagia [Unknown]
  - Rheumatoid arthritis [Fatal]

NARRATIVE: CASE EVENT DATE: 201511
